FAERS Safety Report 19939869 (Version 1)
Quarter: 2021Q4

REPORT INFORMATION
  Report Type: Spontaneous
  Country: US (occurrence: US)
  Receive Date: 20211011
  Receipt Date: 20211011
  Transmission Date: 20220303
  Serious: No
  Sender: FDA-Public Use
  Company Number: US-NEUROCRINE BIOSCIENCES INC.-2021NBI05581

PATIENT

DRUGS (1)
  1. OPICAPONE [Suspect]
     Active Substance: OPICAPONE
     Indication: Product used for unknown indication
     Dosage: ONGENTYS SAMPLE (UNKNOWN DOSE)
     Route: 048

REACTIONS (2)
  - Dyspepsia [Unknown]
  - Vomiting [Unknown]
